FAERS Safety Report 25366279 (Version 1)
Quarter: 2025Q2

REPORT INFORMATION
  Report Type: Other
  Country: CN (occurrence: CN)
  Receive Date: 20250528
  Receipt Date: 20250528
  Transmission Date: 20250716
  Serious: Yes (Other)
  Sender: QILU PHARMACEUTICAL
  Company Number: CN-QILU PHARMACEUTICAL CO.LTD.-QLU-000109-2025

PATIENT
  Age: 41 Year
  Sex: Male
  Weight: 67 kg

DRUGS (3)
  1. TENOFOVIR DISOPROXIL FUMARATE [Suspect]
     Active Substance: TENOFOVIR DISOPROXIL FUMARATE
     Indication: Chronic hepatitis B
     Dosage: 0.3 G ONCE A DAY
     Route: 048
     Dates: start: 20241011
  2. PEGINTERFERON ALFA-2B [Suspect]
     Active Substance: PEGINTERFERON ALFA-2B
     Indication: Chronic hepatitis B
     Route: 058
     Dates: start: 20241011
  3. ENTECAVIR [Suspect]
     Active Substance: ENTECAVIR
     Indication: Chronic hepatitis B
     Route: 048
     Dates: start: 20240819, end: 20241010

REACTIONS (1)
  - Platelet count decreased [Recovered/Resolved]

NARRATIVE: CASE EVENT DATE: 20250411
